FAERS Safety Report 22601006 (Version 1)
Quarter: 2023Q2

REPORT INFORMATION
  Report Type: Report from Study
  Country: US (occurrence: US)
  Receive Date: 20230614
  Receipt Date: 20230614
  Transmission Date: 20230721
  Serious: Yes (Death, Hospitalization, Other)
  Sender: FDA-Public Use
  Company Number: US-JNJFOC-20230629238

PATIENT

DRUGS (4)
  1. DARATUMUMAB [Suspect]
     Active Substance: DARATUMUMAB
     Indication: Plasma cell myeloma refractory
     Dosage: D1, 8, 15, 22 FOR C1-2; D1 AND 15 FOR C3-6; D1 C7
     Route: 042
  2. DARATUMUMAB [Suspect]
     Active Substance: DARATUMUMAB
     Indication: Plasma cell myeloma refractory
     Dosage: D1, 8, 15, 22 FOR C1-2; D1 AND 15 FOR C3- 6; D1 FOR C7
     Route: 058
  3. SELINEXOR [Suspect]
     Active Substance: SELINEXOR
     Indication: Plasma cell myeloma refractory
     Dosage: D1, 8, 15, 22
     Route: 048
  4. DEXAMETHASONE [Suspect]
     Active Substance: DEXAMETHASONE
     Indication: Plasma cell myeloma refractory
     Dosage: D1, 8, 15, 22
     Route: 065

REACTIONS (9)
  - Diarrhoea [Fatal]
  - Asthenia [Fatal]
  - Neutropenia [Unknown]
  - Pneumonia respiratory syncytial viral [Unknown]
  - Pneumonia [Unknown]
  - Hypophosphataemia [Unknown]
  - Hyperglycaemia [Unknown]
  - Fatigue [Unknown]
  - Fall [Unknown]
